FAERS Safety Report 18730679 (Version 1)
Quarter: 2021Q1

REPORT INFORMATION
  Report Type: Spontaneous
  Country: US (occurrence: US)
  Receive Date: 20210112
  Receipt Date: 20210112
  Transmission Date: 20210419
  Serious: Yes (Hospitalization)
  Sender: FDA-Public Use
  Company Number: None

PATIENT
  Age: 86 Year
  Sex: Male
  Weight: 85.3 kg

DRUGS (13)
  1. ZYRTEC [Concomitant]
     Active Substance: CETIRIZINE HYDROCHLORIDE
  2. LIPITOR [Concomitant]
     Active Substance: ATORVASTATIN CALCIUM
  3. METFORMIN HCL [Concomitant]
     Active Substance: METFORMIN HYDROCHLORIDE
  4. METAMUCIL [Concomitant]
     Active Substance: PLANTAGO SEED
  5. COZAAR [Concomitant]
     Active Substance: LOSARTAN POTASSIUM
  6. MIRALAZ [Concomitant]
  7. AMLODIPINE [Concomitant]
     Active Substance: AMLODIPINE BESYLATE
  8. ALPRAZOLAM. [Concomitant]
     Active Substance: ALPRAZOLAM
  9. CELECOXIB. [Concomitant]
     Active Substance: CELECOXIB
  10. TYLENOL [Concomitant]
     Active Substance: ACETAMINOPHEN
  11. BAMLANIVIMAB. [Suspect]
     Active Substance: BAMLANIVIMAB
     Indication: COVID-19
     Dosage: ?          OTHER FREQUENCY:ONE TIME;?
     Route: 041
     Dates: start: 20210105, end: 20210105
  12. MVI [Concomitant]
     Active Substance: VITAMINS
  13. ASPIRIN. [Concomitant]
     Active Substance: ASPIRIN

REACTIONS (4)
  - Asthenia [None]
  - Dyspnoea [None]
  - Fatigue [None]
  - Hypoxia [None]

NARRATIVE: CASE EVENT DATE: 20210109
